FAERS Safety Report 15893687 (Version 1)
Quarter: 2019Q1

REPORT INFORMATION
  Report Type: Report from Study
  Country: ES (occurrence: ES)
  Receive Date: 20190131
  Receipt Date: 20190131
  Transmission Date: 20190417
  Serious: Yes (Hospitalization)
  Sender: FDA-Public Use
  Company Number: ES-PFIZER INC-2019035182

PATIENT
  Age: 3 Year
  Sex: Male

DRUGS (7)
  1. HYDROCORTISONE. [Concomitant]
     Active Substance: HYDROCORTISONE
     Indication: ADRENAL INSUFFICIENCY
     Dosage: 2 MG, 3X/DAY (EVERY 8 HOURS)
     Route: 048
     Dates: start: 20180509
  2. SEPTRIN PAEDIATRIC [Concomitant]
     Active Substance: SULFAMETHOXAZOLE\TRIMETHOPRIM
     Indication: OPPORTUNISTIC INFECTION PROPHYLAXIS
     Dosage: 5 ML, 2X/DAY (EVERY 12 HOURS)
     Route: 048
     Dates: start: 20180110
  3. CYCLOPHOSPHAMIDE. [Suspect]
     Active Substance: CYCLOPHOSPHAMIDE
     Indication: ACUTE LYMPHOCYTIC LEUKAEMIA
     Dosage: 660 MG, 1X/DAY
     Route: 042
     Dates: start: 20180516, end: 20180516
  4. TIOGUANINE [Suspect]
     Active Substance: THIOGUANINE ANHYDROUS
     Indication: ACUTE LYMPHOCYTIC LEUKAEMIA
     Dosage: 40 MG, 1X/DAY
     Route: 048
     Dates: start: 20180516, end: 20180528
  5. MESNA. [Concomitant]
     Active Substance: MESNA
     Indication: PROPHYLAXIS
     Dosage: 792 MG, 1X/DAY
     Route: 042
     Dates: start: 20180516, end: 20180516
  6. ZOVIRAX [Concomitant]
     Active Substance: ACYCLOVIR
     Indication: OPPORTUNISTIC INFECTION PROPHYLAXIS
     Dosage: 2 ML, 3X/DAY (EVERY 8 HOURS)
     Route: 048
     Dates: start: 20171107
  7. CYTARABINE. [Suspect]
     Active Substance: CYTARABINE
     Indication: ACUTE LYMPHOCYTIC LEUKAEMIA
     Dosage: 396 MG, UNK
     Route: 042
     Dates: start: 20180518, end: 20180528

REACTIONS (3)
  - Respiratory tract infection viral [Recovered/Resolved]
  - Anal fissure [Recovered/Resolved]
  - Pancytopenia [Recovered/Resolved]

NARRATIVE: CASE EVENT DATE: 20180527
